FAERS Safety Report 23063005 (Version 1)
Quarter: 2023Q4

REPORT INFORMATION
  Report Type: Spontaneous
  Country: US (occurrence: None)
  Receive Date: 20231012
  Receipt Date: 20231012
  Transmission Date: 20240109
  Serious: Yes (Other)
  Sender: FDA-Public Use
  Company Number: None

PATIENT
  Age: 63 Year
  Sex: Male
  Weight: 107.55 kg

DRUGS (3)
  1. ELIQUIS [Suspect]
     Active Substance: APIXABAN
     Indication: Atrial fibrillation
     Dosage: FREQUENCY : TWICE A DAY;?
     Route: 048
     Dates: start: 20210510, end: 20230925
  2. SOTALOL [Suspect]
     Active Substance: SOTALOL
  3. AMIODARONE [Suspect]
     Active Substance: AMIODARONE

REACTIONS (3)
  - Atrial thrombosis [None]
  - Cardiac procedure complication [None]
  - Procedure aborted [None]

NARRATIVE: CASE EVENT DATE: 20230925
